FAERS Safety Report 5035341-0 (Version None)
Quarter: 2006Q2

REPORT INFORMATION
  Report Type: 
  Country: None (occurrence: None)
  Receive Date: 20060622
  Receipt Date: 20060607
  Transmission Date: 20061013
  Serious: Yes (Hospitalization)
  Sender: FDA-Public Use
  Company Number: L06-FRA-02355-11

PATIENT
  Age: 17 Year
  Sex: Male

DRUGS (3)
  1. CARBAMAZEPINE [Suspect]
     Indication: PETIT MAL EPILEPSY
     Dosage: 800 MG DAILY
  2. PHENYTOIN [Suspect]
     Indication: PETIT MAL EPILEPSY
     Dosage: 300 MG DAILY
  3. VALPROIC ACID [Suspect]
     Indication: PETIT MAL EPILEPSY
     Dosage: 1000 MG DAILY

REACTIONS (7)
  - CLUMSINESS [None]
  - GAIT DISTURBANCE [None]
  - GRAND MAL CONVULSION [None]
  - HYPOTONIA [None]
  - MYOCLONUS [None]
  - POSTURE ABNORMAL [None]
  - STATUS EPILEPTICUS [None]
